FAERS Safety Report 13124625 (Version 2)
Quarter: 2017Q1

REPORT INFORMATION
  Report Type: Spontaneous
  Country: US (occurrence: US)
  Receive Date: 20170118
  Receipt Date: 20170207
  Transmission Date: 20170428
  Serious: Yes (Death, Life-Threatening, Hospitalization, Other)
  Sender: FDA-Public Use
  Company Number: US-AUROBINDO-AUR-APL-2017-01405

PATIENT

DRUGS (2)
  1. LOPERAMIDE [Suspect]
     Active Substance: LOPERAMIDE
     Indication: PRODUCT USED FOR UNKNOWN INDICATION
     Dosage: UNK
     Route: 048
  2. BUPRENORPHINE. [Concomitant]
     Active Substance: BUPRENORPHINE
     Indication: SUBSTANCE ABUSE
     Route: 065

REACTIONS (14)
  - Toxicity to various agents [Fatal]
  - Overdose [Fatal]
  - Venous thrombosis [Unknown]
  - Seizure like phenomena [Unknown]
  - Pulmonary oedema [Unknown]
  - Cardiotoxicity [Fatal]
  - Arrhythmia [Fatal]
  - Urinary retention [Unknown]
  - Brain oedema [Unknown]
  - Respiratory depression [Fatal]
  - Drug abuse [Fatal]
  - Unresponsive to stimuli [Unknown]
  - Seizure [Unknown]
  - Cardio-respiratory arrest [Fatal]
